FAERS Safety Report 5428050-7 (Version None)
Quarter: 2007Q3

REPORT INFORMATION
  Report Type: 
  Country: None (occurrence: None)
  Receive Date: 20070828
  Receipt Date: 20070821
  Transmission Date: 20080115
  Serious: Yes (Hospitalization)
  Sender: FDA-Public Use
  Company Number: US-ROXANE LABORATORIES, INC-2007-BP-19591RO

PATIENT
  Age: 66 Year
  Sex: Male

DRUGS (8)
  1. MERCAPTOPURINE [Suspect]
     Indication: CROHN'S DISEASE
     Route: 048
  2. AZATHIOPRINE [Suspect]
     Indication: CROHN'S DISEASE
     Route: 048
  3. PREDNISONE TAB [Suspect]
     Indication: CROHN'S DISEASE
     Route: 048
  4. MESALAMINE [Suspect]
     Indication: CROHN'S DISEASE
     Route: 048
  5. INFLIXIMAB [Suspect]
     Indication: CROHN'S DISEASE
     Route: 042
  6. LANSOPRAZOLE [Concomitant]
     Route: 048
  7. FLOMAX [Concomitant]
     Route: 048
  8. ALPRAZOLAM [Concomitant]
     Route: 048

REACTIONS (13)
  - COUGH [None]
  - DIABETES MELLITUS [None]
  - DRUG INEFFECTIVE [None]
  - DYSPNOEA [None]
  - HYPOXIA [None]
  - INFLUENZA LIKE ILLNESS [None]
  - INTERSTITIAL LUNG DISEASE [None]
  - MYALGIA [None]
  - PULMONARY TOXICITY [None]
  - PYREXIA [None]
  - RESPIRATORY FAILURE [None]
  - WEIGHT INCREASED [None]
  - WHITE BLOOD CELL COUNT INCREASED [None]
